FAERS Safety Report 4318980-1 (Version None)
Quarter: 2004Q1

REPORT INFORMATION
  Report Type: 
  Country: None (occurrence: None)
  Receive Date: 20040316
  Receipt Date: 20040305
  Transmission Date: 20041129
  Serious: Yes (Other)
  Sender: FDA-Public Use
  Company Number: DE-JNJFOC-20040301730

PATIENT
  Sex: Male

DRUGS (1)
  1. RISPERDAL [Suspect]

REACTIONS (1)
  - LEUKOPENIA [None]
